FAERS Safety Report 8647839 (Version 2)
Quarter: 2012Q4

REPORT INFORMATION
  Report Type: 
  Country: NL (occurrence: NL)
  Receive Date: 20120703
  Receipt Date: 20120926
  Transmission Date: 20130627
  Serious: Yes (Death, Hospitalization, Other)
  Sender: FDA-Public Use
  Company Number: NL-PFIZER INC-2012153641

PATIENT
  Age: 67 None
  Sex: Male

DRUGS (3)
  1. DEXAMETHASONE SODIUM PHOSPHATE [Suspect]
     Indication: DERMATOMYOSITIS
     Dosage: 4 mg, 1x/day
  2. CYCLOPHOSPHAMIDE [Suspect]
     Indication: DERMATOMYOSITIS
  3. SIROLIMUS [Suspect]
     Indication: DERMATOMYOSITIS
     Dosage: 1 mg, 1x/day

REACTIONS (2)
  - Progressive multifocal leukoencephalopathy [Fatal]
  - Coma [Fatal]
